FAERS Safety Report 4643205-7 (Version None)
Quarter: 2005Q2

REPORT INFORMATION
  Report Type: 
  Country: None (occurrence: None)
  Receive Date: 20050421
  Receipt Date: 20050418
  Transmission Date: 20051028
  Serious: Yes (Hospitalization)
  Sender: FDA-Public Use
  Company Number: URSO 2005-014

PATIENT
  Age: 35 Year
  Sex: Female

DRUGS (9)
  1. URSODIOL [Suspect]
     Indication: BILIARY CIRRHOSIS PRIMARY
     Dosage: 600 MG, 900 MG, PO
     Route: 048
     Dates: start: 20020223, end: 20020430
  2. CHOLEBINE TABS (COLESTILAN) [Concomitant]
  3. MAGNESIUM OXIDE [Concomitant]
  4. MUCOSTA (REBAMIPIDE) [Concomitant]
  5. ALOSEEN (SENNA) [Concomitant]
  6. BEZATOL SR (BEZAFIBRATE) [Concomitant]
  7. STRONGER NEO-MINOPHAGEN C (AMMONIUM GLYCYRRHIZINATE) [Concomitant]
  8. LIPITOR [Concomitant]
  9. PREDNISOLONE [Concomitant]

REACTIONS (7)
  - ALANINE AMINOTRANSFERASE INCREASED [None]
  - ASPARTATE AMINOTRANSFERASE INCREASED [None]
  - BILIARY CIRRHOSIS PRIMARY [None]
  - BLOOD ALKALINE PHOSPHATASE INCREASED [None]
  - DISEASE PROGRESSION [None]
  - HEPATIC FUNCTION ABNORMAL [None]
  - JAUNDICE [None]
